FAERS Safety Report 13651092 (Version 1)
Quarter: 2017Q2

REPORT INFORMATION
  Report Type: Report from Study
  Country: FR (occurrence: FR)
  Receive Date: 20170614
  Receipt Date: 20170614
  Transmission Date: 20170830
  Serious: Yes (Other)
  Sender: FDA-Public Use
  Company Number: FR-PFIZER INC-2017252765

PATIENT
  Age: 28 Year
  Sex: Female

DRUGS (5)
  1. PREGABALIN. [Suspect]
     Active Substance: PREGABALIN
     Dosage: 10 CAPSULES/DAY (2 OR 3 CAPSULES/INTAKE)
  2. ARIPIPRAZOLE. [Concomitant]
     Active Substance: ARIPIPRAZOLE
     Dosage: UNK
  3. LORAZEPAM. [Concomitant]
     Active Substance: LORAZEPAM
     Dosage: UNK
  4. LITHIUM. [Concomitant]
     Active Substance: LITHIUM
     Dosage: UNK
  5. PREGABALIN. [Suspect]
     Active Substance: PREGABALIN
     Dosage: 200 MG, 3X/DAY

REACTIONS (2)
  - Drug use disorder [Unknown]
  - Dependence [Unknown]
